FAERS Safety Report 8577420 (Version 9)
Quarter: 2012Q4

REPORT INFORMATION
  Report Type: Report from Study
  Country: JP (occurrence: JP)
  Receive Date: 20120524
  Receipt Date: 20120927
  Transmission Date: 20130627
  Serious: Yes (Hospitalization, Other)
  Sender: FDA-Public Use
  Company Number: JP-UCBSA-057398

PATIENT
  Age: 69 Year
  Sex: Female

DRUGS (17)
  1. CERTOLIZUMAB PEGOL [Suspect]
     Indication: RHEUMATOID ARTHRITIS
     Route: 058
     Dates: start: 20100813, end: 20120419
  2. CERTOLIZUMAB PEGOL [Suspect]
     Indication: RHEUMATOID ARTHRITIS
     Route: 058
     Dates: start: 20090813, end: 20100729
  3. FAMOTIDINE [Concomitant]
     Indication: GASTRITIS PROPHYLAXIS
     Dosage: DAILY DOSE: 40 MG
     Route: 048
     Dates: start: 20090813
  4. PREDNISOLONE [Concomitant]
     Indication: RHEUMATOID ARTHRITIS
     Dosage: DAILY DOSE: 4 MG
     Route: 048
     Dates: start: 20090813
  5. ACTONEL [Concomitant]
     Indication: OSTEOPOROSIS PROPHYLAXIS
     Route: 048
     Dates: start: 20090813
  6. CELECOX [Concomitant]
     Indication: RHEUMATOID ARTHRITIS
     Dosage: DAILY DOSE: 200 MG
     Route: 048
     Dates: start: 20091106
  7. DEPAS [Concomitant]
     Indication: ANXIETY
     Dosage: DAILY DOSE: 0.5 MG
     Route: 048
     Dates: start: 20111207
  8. TRAVELMIN [Concomitant]
     Indication: ANXIETY
     Dosage: DAILY DOSE: 2 DF
     Route: 048
     Dates: start: 20111116
  9. HALCION [Concomitant]
     Indication: INSOMNIA
     Dosage: DAILY DOSE: 0.25 MG
     Route: 048
     Dates: start: 20090813
  10. FERROMIA [Concomitant]
     Indication: ANAEMIA PROPHYLAXIS
     Dosage: DAILY DOSE: 50 MG
     Route: 048
     Dates: start: 20120126
  11. VOLTAREN [Concomitant]
     Indication: RHEUMATOID ARTHRITIS
     Dosage: DAILY DOSE: 50 MG
     Route: 054
     Dates: start: 20100209
  12. MYONAL [Concomitant]
     Indication: ANXIETY
     Dosage: DAILY DOSE: 50 MG
     Route: 048
     Dates: start: 20111207
  13. MEILAX [Concomitant]
     Indication: ANXIETY
     Dosage: DAILY DOSE: 1 MG
     Route: 048
     Dates: start: 20100520
  14. MOHRUS TAPE [Concomitant]
     Indication: RHEUMATOID ARTHRITIS
     Dosage: AS NEEDED
     Route: 062
     Dates: start: 20101104
  15. LIVALO [Concomitant]
     Indication: HYPERCHOLESTEROLAEMIA
     Dosage: DAILY DOSE: 1 MG
     Route: 048
     Dates: start: 20101007
  16. POSTERISAN [Concomitant]
     Indication: ANAL FISSURE
     Dosage: DAILY DOSE: 2 G
     Route: 061
     Dates: start: 20101228
  17. BAYASPIRIN [Concomitant]
     Indication: CEREBRAL INFARCTION
     Dosage: DAILY DOSE: 100 MG
     Route: 048
     Dates: start: 20120421

REACTIONS (2)
  - Arthritis bacterial [Recovered/Resolved]
  - Adenoma benign [Recovered/Resolved]
